FAERS Safety Report 8805027 (Version 2)
Quarter: 2015Q1

REPORT INFORMATION
  Report Type: Report from Study
  Country: US (occurrence: US)
  Receive Date: 20120924
  Receipt Date: 20150313
  Transmission Date: 20150721
  Serious: Yes (Death)
  Sender: FDA-Public Use
  Company Number: US-ROCHE-1123753

PATIENT
  Sex: Female
  Weight: 55.4 kg

DRUGS (19)
  1. LORAZEPAM. [Concomitant]
     Active Substance: LORAZEPAM
     Route: 048
  2. METHYLPREDNISOLONE. [Concomitant]
     Active Substance: METHYLPREDNISOLONE
  3. BENZONATATE. [Concomitant]
     Active Substance: BENZONATATE
  4. ZYPREXA [Concomitant]
     Active Substance: OLANZAPINE
  5. AVASTIN [Suspect]
     Active Substance: BEVACIZUMAB
     Indication: ENDOCRINE NEOPLASM MALIGNANT
     Route: 042
     Dates: start: 20090122
  6. EFFEXOR [Concomitant]
     Active Substance: VENLAFAXINE HYDROCHLORIDE
     Route: 048
  7. METYRAPONE [Concomitant]
     Active Substance: METYRAPONE
  8. ARIXTRA [Concomitant]
     Active Substance: FONDAPARINUX SODIUM
  9. HYDROMORPHONE [Concomitant]
     Active Substance: HYDROMORPHONE
  10. WELLBUTRIN [Concomitant]
     Active Substance: BUPROPION HYDROCHLORIDE
  11. TORISEL [Concomitant]
     Active Substance: TEMSIROLIMUS
     Route: 042
  12. HYDROCORTISONE. [Concomitant]
     Active Substance: HYDROCORTISONE
  13. METHADONE [Concomitant]
     Active Substance: METHADONE HYDROCHLORIDE
  14. CELEBREX [Concomitant]
     Active Substance: CELECOXIB
  15. DEXAMETHASONE. [Concomitant]
     Active Substance: DEXAMETHASONE
  16. METOCLOPRAMIDE. [Concomitant]
     Active Substance: METOCLOPRAMIDE
  17. DRONABINOL. [Concomitant]
     Active Substance: DRONABINOL
  18. XOPENEX [Concomitant]
     Active Substance: LEVALBUTEROL HYDROCHLORIDE
  19. CLONAZEPAM. [Concomitant]
     Active Substance: CLONAZEPAM
     Route: 065

REACTIONS (2)
  - Death [Fatal]
  - Back pain [Unknown]
